FAERS Safety Report 9214015 (Version 4)
Quarter: 2014Q2

REPORT INFORMATION
  Report Type: Spontaneous
  Country: CH (occurrence: CH)
  Receive Date: 20130405
  Receipt Date: 20140422
  Transmission Date: 20141212
  Serious: Yes (Death, Hospitalization, Other)
  Sender: FDA-Public Use
  Company Number: CH-CELGENEUS-151-21880-13030279

PATIENT
  Age: 60 Year
  Sex: Female
  Weight: 50.7 kg

DRUGS (12)
  1. REVLIMID [Suspect]
     Indication: PLASMA CELL MYELOMA
     Dosage: DAY 1-21
     Route: 048
     Dates: start: 20130212, end: 20130227
  2. REVLIMID [Suspect]
     Dosage: DAY 1-21
     Route: 048
     Dates: start: 20130308, end: 20130312
  3. REVLIMID [Suspect]
     Route: 048
     Dates: start: 20130409
  4. BENDAMUSTINE [Suspect]
     Indication: PLASMA CELL MYELOMA
     Dosage: DAY 1-2
     Route: 041
     Dates: start: 20130212, end: 20130214
  5. BENDAMUSTINE [Suspect]
     Dosage: DAY 1-2
     Route: 041
     Dates: end: 20130312
  6. BENDAMUSTINE [Suspect]
     Route: 065
     Dates: end: 20130409
  7. DEXAMETHASONE [Suspect]
     Indication: PLASMA CELL MYELOMA
     Dosage: DAY 1+8+15+22
     Route: 048
     Dates: start: 20130212, end: 20130227
  8. PARACETAMOL [Concomitant]
     Indication: BONE PAIN
     Dosage: 4000 MILLIGRAM
     Route: 048
     Dates: start: 20121128, end: 20130227
  9. TRIMETOPRIM W/SULFAMETOXAZOL [Concomitant]
     Indication: ANTIFUNGAL PROPHYLAXIS
     Dosage: 800MG/160MG
     Route: 048
     Dates: start: 20130212
  10. VALACICLOVIR [Concomitant]
     Indication: ANTIVIRAL PROPHYLAXIS
     Dosage: 1000 MILLIGRAM
     Route: 048
     Dates: start: 20130212
  11. DALTEPARIN [Concomitant]
     Indication: THROMBOSIS PROPHYLAXIS
     Dosage: 5000 IU (INTERNATIONAL UNIT)
     Route: 058
     Dates: start: 20130212, end: 20130227
  12. PAMIDRONATE [Concomitant]
     Indication: OSTEOLYSIS
     Route: 041
     Dates: start: 20120428

REACTIONS (6)
  - Pneumonia [Recovered/Resolved]
  - Neutrophil count decreased [Recovered/Resolved]
  - Platelet count decreased [Recovered/Resolved]
  - Febrile neutropenia [Recovered/Resolved]
  - Plasma cell myeloma [Fatal]
  - Transaminases increased [Recovered/Resolved]
